FAERS Safety Report 4409806-6 (Version None)
Quarter: 2004Q3

REPORT INFORMATION
  Report Type: 
  Country: None (occurrence: None)
  Receive Date: 20040723
  Receipt Date: 20040709
  Transmission Date: 20050211
  Serious: Yes (Other)
  Sender: FDA-Public Use
  Company Number: US013424

PATIENT
  Sex: Male

DRUGS (2)
  1. ACTIQ [Suspect]
     Indication: ANKLE FRACTURE
     Dosage: 600 UG BUCCAL
     Route: 002
  2. ACTIQ [Suspect]
     Indication: PAIN
     Dosage: 600 UG BUCCAL
     Route: 002

REACTIONS (3)
  - HAEMOPTYSIS [None]
  - HEART RATE INCREASED [None]
  - PULMONARY OEDEMA [None]
